FAERS Safety Report 13576889 (Version 2)
Quarter: 2017Q4

REPORT INFORMATION
  Report Type: Spontaneous
  Country: GB (occurrence: GB)
  Receive Date: 20170524
  Receipt Date: 20171128
  Transmission Date: 20180320
  Serious: Yes (Other)
  Sender: FDA-Public Use
  Company Number: GB-B. BRAUN MEDICAL INC.-2021156

PATIENT
  Age: 40 Year
  Sex: Female

DRUGS (1)
  1. METRONIDAZOLE. [Suspect]
     Active Substance: METRONIDAZOLE
     Indication: CANDIDA INFECTION

REACTIONS (7)
  - Eye pain [Unknown]
  - Swelling [Unknown]
  - Diarrhoea [Unknown]
  - Paraesthesia [Unknown]
  - Muscular weakness [Unknown]
  - Abdominal distension [None]
  - Dyspnoea [Unknown]
